FAERS Safety Report 6832193-0 (Version None)
Quarter: 2010Q3

REPORT INFORMATION
  Report Type: 
  Country: None (occurrence: None)
  Receive Date: 20100712
  Receipt Date: 20100709
  Transmission Date: 20110219
  Serious: Yes (Death)
  Sender: FDA-Public Use
  Company Number: PHHO2009JP04066

PATIENT
  Sex: Female
  Weight: 61 kg

DRUGS (6)
  1. PLACEBO COMP-PLA+ [Suspect]
     Indication: PANCREATIC NEUROENDOCRINE TUMOUR
     Dosage: 10 MG DAILY
     Route: 048
     Dates: start: 20081029
  2. RAD 666 [Suspect]
     Indication: PANCREATIC NEUROENDOCRINE TUMOUR
     Dosage: 10 MG, QD
     Route: 048
     Dates: start: 20090126
  3. TAKEPRON [Concomitant]
  4. ULCERLMIN [Concomitant]
  5. EXCELASE [Concomitant]
  6. BIOFERMIN R [Concomitant]
     Indication: DIARRHOEA
     Dosage: UNK
     Dates: start: 20080913

REACTIONS (4)
  - PANCREATIC NEUROENDOCRINE TUMOUR [None]
  - PRODUCTIVE COUGH [None]
  - VOMITING [None]
  - WEIGHT DECREASED [None]
